FAERS Safety Report 23754860 (Version 4)
Quarter: 2024Q4

REPORT INFORMATION
  Report Type: Report from Study
  Country: US (occurrence: US)
  Receive Date: 20240418
  Receipt Date: 20241224
  Transmission Date: 20250115
  Serious: Yes (Hospitalization, Other)
  Sender: UCB
  Company Number: US-UCBSA-2024018388

PATIENT
  Sex: Male

DRUGS (4)
  1. FINTEPLA [Suspect]
     Active Substance: FENFLURAMINE
     Indication: Lennox-Gastaut syndrome
     Dosage: 17.6 MILLIGRAM PER DAY
     Dates: start: 202307
  2. FINTEPLA [Suspect]
     Active Substance: FENFLURAMINE
     Dosage: 2.7 MILLILITER, 2X/DAY (BID)
     Route: 048
     Dates: start: 20230804
  3. FINTEPLA [Suspect]
     Active Substance: FENFLURAMINE
     Dosage: 2.75 MILLILITER, 2X/DAY (BID)
     Route: 048
  4. FINTEPLA [Suspect]
     Active Substance: FENFLURAMINE
     Dosage: 3.3 MILLILITER, 2X/DAY (BID)
     Route: 048

REACTIONS (3)
  - Seizure [Not Recovered/Not Resolved]
  - Intentional self-injury [Not Recovered/Not Resolved]
  - Behaviour disorder [Not Recovered/Not Resolved]
